FAERS Safety Report 5493661-X (Version None)
Quarter: 2007Q4

REPORT INFORMATION
  Report Type: 
  Country: None (occurrence: None)
  Receive Date: 20071023
  Receipt Date: 20071012
  Transmission Date: 20080405
  Serious: Yes (Other)
  Sender: FDA-Public Use
  Company Number: US-ELI_LILLY_AND_COMPANY-US200710003820

PATIENT
  Sex: Female

DRUGS (4)
  1. EVISTA [Suspect]
     Dosage: 60 MG, UNK
     Route: 048
     Dates: start: 20050601, end: 20070924
  2. ALLOPURINOL [Concomitant]
     Indication: GOUT
     Dosage: 300 UNK, DAILY (1/D)
     Route: 048
     Dates: start: 20050101
  3. LISINOPRIL [Concomitant]
     Indication: HYPERTENSION
     Dosage: 40 UNK, DAILY (1/D)
     Route: 048
     Dates: start: 20050101
  4. LASIX [Concomitant]
     Indication: OEDEMA
     Dosage: 40 UNK, DAILY (1/D)
     Route: 048
     Dates: start: 20050101

REACTIONS (2)
  - OSTEONECROSIS [None]
  - OSTEOPENIA [None]
